FAERS Safety Report 6216742-1 (Version None)
Quarter: 2009Q2

REPORT INFORMATION
  Report Type: 
  Country: None (occurrence: None)
  Receive Date: 20090605
  Receipt Date: 20090529
  Transmission Date: 20091009
  Serious: Yes (Other)
  Sender: FDA-Public Use
  Company Number: PHHY2009BR21154

PATIENT
  Sex: Female

DRUGS (2)
  1. TEGRETOL [Suspect]
     Dosage: 200 MG, QD
     Dates: start: 20050101
  2. AMLODIPINE [Concomitant]
     Dosage: 1 DF, TID

REACTIONS (3)
  - BALANCE DISORDER [None]
  - CEREBRAL ISCHAEMIA [None]
  - DYSARTHRIA [None]
